FAERS Safety Report 25140192 (Version 2)
Quarter: 2025Q2

REPORT INFORMATION
  Report Type: Report from Study
  Country: FR (occurrence: FR)
  Receive Date: 20250331
  Receipt Date: 20250404
  Transmission Date: 20250717
  Serious: Yes (Other)
  Sender: GILEAD
  Company Number: FR-GILEAD-2025-0708704

PATIENT
  Age: 38 Year
  Sex: Female

DRUGS (1)
  1. SACITUZUMAB GOVITECAN-HZIY [Suspect]
     Active Substance: SACITUZUMAB GOVITECAN-HZIY
     Indication: Triple negative breast cancer
     Route: 042
     Dates: end: 20250318

REACTIONS (13)
  - Intestinal obstruction [Unknown]
  - Fear of disease [Unknown]
  - Vomiting [Unknown]
  - Headache [Unknown]
  - Bedridden [Unknown]
  - Fatigue [Unknown]
  - Abdominal pain [Unknown]
  - Hypophagia [Unknown]
  - Constipation [Unknown]
  - Flatulence [Unknown]
  - Secretion discharge [Unknown]
  - General physical health deterioration [Unknown]
  - Pain [Unknown]
